FAERS Safety Report 16900059 (Version 2)
Quarter: 2019Q4

REPORT INFORMATION
  Report Type: Spontaneous
  Country: TR (occurrence: TR)
  Receive Date: 20191009
  Receipt Date: 20191011
  Transmission Date: 20200122
  Serious: Yes (Other)
  Sender: FDA-Public Use
  Company Number: TR-JNJFOC-20190939252

PATIENT
  Age: 95 Month
  Sex: Female

DRUGS (1)
  1. CONCERTA [Suspect]
     Active Substance: METHYLPHENIDATE HYDROCHLORIDE
     Indication: ATTENTION DEFICIT/HYPERACTIVITY DISORDER
     Dosage: MAXIMUM DOSE 60 MG
     Route: 065

REACTIONS (3)
  - Precocious puberty [Unknown]
  - Off label use [Unknown]
  - Inappropriate schedule of product administration [Unknown]
